FAERS Safety Report 9909061 (Version 4)
Quarter: 2014Q3

REPORT INFORMATION
  Report Type: Spontaneous
  Country: US (occurrence: None)
  Receive Date: 20140212
  Receipt Date: 20140915
  Transmission Date: 20150326
  Serious: Yes (Hospitalization, Other)
  Sender: FDA-Public Use
  Company Number: 2012-004459

PATIENT
  Age: 73 Year
  Sex: Female
  Weight: 47.6 kg

DRUGS (22)
  1. LASIX  /00032601/ (FUROSEMIDE) [Concomitant]
  2. ALENDRONATE [Suspect]
     Active Substance: ALENDRONATE SODIUM
     Indication: OSTEOPOROSIS PROPHYLAXIS
     Dosage: 70 MG, EVERY OTHER WEEK, ORAL
     Route: 048
     Dates: start: 20090831, end: 201012
  3. ACTONEL [Suspect]
     Active Substance: RISEDRONATE SODIUM
     Indication: OSTEOPOROSIS PROPHYLAXIS
     Route: 048
     Dates: start: 20060831, end: 20090831
  4. CALAN /00014302/ (VERAPAML HYDROCHLORIDE) [Concomitant]
  5. CALCIUM (CALCIUM) [Concomitant]
     Active Substance: CALCIUM
  6. FOSAMAX [Suspect]
     Active Substance: ALENDRONATE SODIUM
     Indication: OSTEOPOROSIS PROPHYLAXIS
     Dosage: 70 MG, 1/WEEK, ORAL
     Route: 048
     Dates: start: 200210, end: 200604
  7. ZETIA [Concomitant]
     Active Substance: EZETIMIBE
  8. LONITEN (MINOXIDIL) [Concomitant]
  9. NITROSTAT (GLYCERYL TRINITRATE) [Concomitant]
  10. PLAVIX [Concomitant]
     Active Substance: CLOPIDOGREL BISULFATE
  11. FOSAMAX [Suspect]
     Active Substance: ALENDRONATE SODIUM
     Indication: OSTEOPOROSIS
     Dosage: 70 MG, 1/WEEK, ORAL
     Route: 048
     Dates: start: 200210, end: 200604
  12. ACCUPRIL [Concomitant]
     Active Substance: QUINAPRIL HYDROCHLORIDE
  13. IMDUR (ISOSORBIDE MONONITRATE) [Concomitant]
  14. BABY ASPIRIN (ACETYLSALICYLIC ACID) [Concomitant]
     Active Substance: ASPIRIN
  15. VITAMIN D [Concomitant]
     Active Substance: CHOLECALCIFEROL
  16. ALENDRONATE [Suspect]
     Active Substance: ALENDRONATE SODIUM
     Indication: OSTEOPOROSIS
     Dosage: 70 MG, EVERY OTHER WEEK, ORAL
     Route: 048
     Dates: start: 20090831, end: 201012
  17. CRESTOR [Concomitant]
     Active Substance: ROSUVASTATIN CALCIUM
  18. WELCHOL (COLESEVELAM HYDROCHLORIDE) (625 MILLIGRAM, TABLET) (COLESEVELAM HYDROCHLORIDE) [Concomitant]
     Active Substance: COLESEVELAM HYDROCHLORIDE
  19. TOPROL (METORPOLOL SUCCINATE) [Concomitant]
  20. ADVIL /00109201/ (IBUPROFEN [Concomitant]
  21. ACTONEL [Suspect]
     Active Substance: RISEDRONATE SODIUM
     Indication: OSTEOPOROSIS
     Route: 048
     Dates: start: 20060831, end: 20090831
  22. TEKTURNA (ALISKIREN FUMARATE) [Concomitant]

REACTIONS (14)
  - Osteoma [None]
  - Low turnover osteopathy [None]
  - Pathological fracture [None]
  - Osteogenesis imperfecta [None]
  - Pain [None]
  - Femur fracture [None]
  - Bone disorder [None]
  - Pain in extremity [None]
  - Stress fracture [None]
  - Walking aid user [None]
  - Fracture displacement [None]
  - Fall [None]
  - Muscular weakness [None]
  - Atypical femur fracture [None]

NARRATIVE: CASE EVENT DATE: 201008
